FAERS Safety Report 15075035 (Version 2)
Quarter: 2023Q4

REPORT INFORMATION
  Report Type: Report from Study
  Country: US (occurrence: US)
  Receive Date: 20180627
  Receipt Date: 20231109
  Transmission Date: 20240109
  Serious: No
  Sender: FDA-Public Use
  Company Number: US-SAOL THERAPEUTICS-2017SAO01676

PATIENT
  Age: 39 Year
  Sex: Male

DRUGS (8)
  1. BACLOFEN [Suspect]
     Active Substance: BACLOFEN
     Dosage: 770.8 ?G, \DAY
     Route: 037
     Dates: start: 20160324, end: 20160411
  2. BACLOFEN [Suspect]
     Active Substance: BACLOFEN
     Dosage: 740.1 ?G, \DAY
     Route: 037
     Dates: start: 20160411, end: 20160715
  3. BACLOFEN [Suspect]
     Active Substance: BACLOFEN
     Dosage: 670.5 ?G, \DAY
     Route: 037
     Dates: start: 20160715, end: 20161027
  4. BACLOFEN [Suspect]
     Active Substance: BACLOFEN
     Dosage: 700 ?G, \DAY
     Route: 037
     Dates: start: 20161027
  5. DILAUDID [Suspect]
     Active Substance: HYDROMORPHONE HYDROCHLORIDE
     Dosage: 1.541 MG, \DAY
     Route: 037
     Dates: start: 20160324, end: 20160411
  6. DILAUDID [Suspect]
     Active Substance: HYDROMORPHONE HYDROCHLORIDE
     Dosage: 1.48 MG, \DAY
     Route: 037
     Dates: start: 20160411, end: 20160715
  7. DILAUDID [Suspect]
     Active Substance: HYDROMORPHONE HYDROCHLORIDE
     Dosage: 1.341 MG, \DAY
     Route: 037
     Dates: start: 20160715, end: 20161027
  8. DILAUDID [Suspect]
     Active Substance: HYDROMORPHONE HYDROCHLORIDE
     Dosage: 1.400 MG, \DAY
     Route: 037
     Dates: start: 20161027

REACTIONS (3)
  - Sedation [Recovered/Resolved]
  - Fatigue [Recovered/Resolved]
  - Implant site extravasation [Not Recovered/Not Resolved]

NARRATIVE: CASE EVENT DATE: 20160411
